FAERS Safety Report 8596229-1 (Version None)
Quarter: 2012Q3

REPORT INFORMATION
  Report Type: 
  Country: None (occurrence: None)
  Receive Date: 20120815
  Receipt Date: 20120806
  Transmission Date: 20120928
  Serious: Yes (Other)
  Sender: FDA-Public Use
  Company Number: US-ASTRAZENECA-2010SE55675

PATIENT
  Age: 53 Year
  Sex: Male

DRUGS (3)
  1. AMBIEN [Concomitant]
     Indication: SLEEP DISORDER
  2. NEXIUM [Suspect]
     Route: 048
  3. UNISOM [Concomitant]
     Indication: SLEEP DISORDER

REACTIONS (5)
  - INSOMNIA [None]
  - INCISIONAL HERNIA [None]
  - HIATUS HERNIA [None]
  - ADVERSE EVENT [None]
  - SOMNOLENCE [None]
